FAERS Safety Report 4464814-4 (Version None)
Quarter: 2004Q4

REPORT INFORMATION
  Report Type: 
  Country: None (occurrence: None)
  Receive Date: 20041004
  Receipt Date: 20030919
  Transmission Date: 20050328
  Serious: No
  Sender: FDA-Public Use
  Company Number: US-GLAXOSMITHKLINE-A0426621A

PATIENT
  Age: 82 Year
  Sex: Female

DRUGS (10)
  1. COREG [Suspect]
     Dosage: 6MG TWICE PER DAY
     Route: 048
     Dates: start: 20021101
  2. SYNTHROID [Concomitant]
  3. ZOCOR [Concomitant]
  4. CELEXA [Concomitant]
  5. MULTIVITAMIN [Concomitant]
  6. FISH OIL [Concomitant]
  7. CALCIUM [Concomitant]
  8. VIT. C [Concomitant]
  9. VIT. E [Concomitant]
  10. NITROGLYCERIN [Concomitant]

REACTIONS (6)
  - ABNORMAL BEHAVIOUR [None]
  - AGGRESSION [None]
  - AGITATION [None]
  - ENERGY INCREASED [None]
  - NERVOUSNESS [None]
  - RESTLESSNESS [None]
